FAERS Safety Report 9359268 (Version 1)
Quarter: 2013Q2

REPORT INFORMATION
  Report Type: Spontaneous
  Country: US (occurrence: US)
  Receive Date: 20130620
  Receipt Date: 20130620
  Transmission Date: 20140414
  Serious: No
  Sender: FDA-Public Use
  Company Number: US-US-EMD SERONO, INC.-236785J08USA

PATIENT
  Age: 45 Year
  Sex: Female
  Weight: 70 kg

DRUGS (3)
  1. REBIF [Suspect]
     Indication: MULTIPLE SCLEROSIS
     Route: 058
     Dates: start: 20060615
  2. PHENERGAN [Concomitant]
     Indication: PREMEDICATION
     Route: 065
  3. MOBIC [Concomitant]
     Indication: PRODUCT USED FOR UNKNOWN INDICATION
     Route: 065

REACTIONS (7)
  - Vomiting [Recovered/Resolved]
  - Nausea [Unknown]
  - Psoriasis [Unknown]
  - Hot flush [Unknown]
  - Laboratory test abnormal [Unknown]
  - Sensory disturbance [Unknown]
  - Muscle spasms [Unknown]
